FAERS Safety Report 8743364 (Version 2)
Quarter: 2012Q4

REPORT INFORMATION
  Report Type: 
  Country: US (occurrence: US)
  Receive Date: 20120824
  Receipt Date: 20120831
  Transmission Date: 20130627
  Serious: Yes (Other)
  Sender: FDA-Public Use
  Company Number: US-US-EMD SERONO, INC.-7030461

PATIENT
  Age: 42 Year
  Sex: Female

DRUGS (4)
  1. REBIF [Suspect]
     Indication: MULTIPLE SCLEROSIS
     Route: 058
     Dates: start: 20090615
  2. LISINOPRIL [Suspect]
     Indication: HYPERTENSION
     Dates: end: 20120815
  3. HYDROCHLOROTHIAZIDE [Suspect]
     Indication: HYPERTENSION
  4. DEPAKOTE [Concomitant]
     Indication: MIGRAINE

REACTIONS (9)
  - Orthostatic hypotension [Recovering/Resolving]
  - Malaise [Recovering/Resolving]
  - Diarrhoea [Recovering/Resolving]
  - Balance disorder [Unknown]
  - Blood pressure abnormal [Recovered/Resolved]
  - Asthenia [Recovering/Resolving]
  - Pain [Recovering/Resolving]
  - Injection site erythema [Unknown]
  - Injection site bruising [Unknown]
